FAERS Safety Report 7860388-6 (Version None)
Quarter: 2011Q4

REPORT INFORMATION
  Report Type: 
  Country: None (occurrence: None)
  Receive Date: 20111027
  Receipt Date: 20111018
  Transmission Date: 20120403
  Serious: Yes (Other)
  Sender: FDA-Public Use
  Company Number: PHHY2011SE90481

PATIENT
  Sex: Male

DRUGS (3)
  1. RITALIN [Suspect]
     Dosage: 20 MG, QD
     Dates: start: 20110810
  2. RITALIN [Suspect]
     Dosage: 60 MG, QD
  3. RITALIN [Suspect]
     Dosage: 780 MG, IN ONE DAY

REACTIONS (3)
  - PARAESTHESIA [None]
  - INTENTIONAL OVERDOSE [None]
  - HYPOAESTHESIA [None]
